FAERS Safety Report 25547608 (Version 1)
Quarter: 2025Q3

REPORT INFORMATION
  Report Type: Other
  Country: EU (occurrence: EU)
  Receive Date: 20250714
  Receipt Date: 20250714
  Transmission Date: 20251021
  Serious: Yes (Other)
  Sender: ZYDUS PHARM
  Company Number: None

PATIENT

DRUGS (2)
  1. GABAPENTIN [Suspect]
     Active Substance: GABAPENTIN
     Indication: Product used for unknown indication
     Route: 065
     Dates: start: 20240913, end: 20250226
  2. LINAGLIPTIN [Suspect]
     Active Substance: LINAGLIPTIN
     Indication: Type 2 diabetes mellitus
     Route: 065
     Dates: start: 20191204, end: 20241115

REACTIONS (1)
  - Pemphigoid [Unknown]

NARRATIVE: CASE EVENT DATE: 20240927
